FAERS Safety Report 7058835-5 (Version None)
Quarter: 2010Q4

REPORT INFORMATION
  Report Type: 
  Country: None (occurrence: None)
  Receive Date: 20101022
  Receipt Date: 20101014
  Transmission Date: 20110411
  Serious: Yes (Death)
  Sender: FDA-Public Use
  Company Number: JP-ABBOTT-10P-087-0636774-00

PATIENT
  Age: 55 Year
  Sex: Male

DRUGS (12)
  1. LEUPROLIDE ACETATE [Suspect]
     Indication: PROSTATE CANCER STAGE IV
     Route: 058
     Dates: start: 20060104, end: 20070405
  2. BICALUTAMIDE [Concomitant]
     Indication: PROSTATE CANCER STAGE IV
     Route: 048
     Dates: end: 20060329
  3. CHLORMADINONE ACETATE TAB [Concomitant]
     Indication: PROSTATE CANCER STAGE IV
     Route: 048
     Dates: start: 20060515, end: 20060719
  4. FOSFESTROL [Concomitant]
     Indication: PROSTATE CANCER STAGE IV
     Route: 042
     Dates: start: 20060808, end: 20060817
  5. FOSFESTROL [Concomitant]
     Route: 048
     Dates: start: 20070219, end: 20070315
  6. ESTRAMUSTINE PHOSPHATE SODIUM [Concomitant]
     Indication: PROSTATE CANCER STAGE IV
     Route: 048
     Dates: start: 20060330, end: 20060427
  7. ESTRAMUSTINE PHOSPHATE SODIUM [Concomitant]
     Route: 048
     Dates: start: 20061218, end: 20070215
  8. ENDOXAN [Concomitant]
     Indication: PROSTATE CANCER STAGE IV
     Route: 048
     Dates: start: 20060428, end: 20060514
  9. DECADRON [Concomitant]
     Indication: PROSTATE CANCER STAGE IV
     Route: 048
     Dates: start: 20060719, end: 20070118
  10. PREDNISOLONE [Concomitant]
     Indication: PROSTATE CANCER STAGE IV
     Route: 048
     Dates: start: 20070118, end: 20070315
  11. TAXOTERE [Concomitant]
     Indication: PROSTATE CANCER STAGE IV
     Route: 042
     Dates: start: 20070410, end: 20070626
  12. ZOMETA [Concomitant]
     Indication: PROSTATE CANCER STAGE IV
     Route: 042
     Dates: start: 20070502, end: 20070626

REACTIONS (1)
  - PROSTATE CANCER STAGE IV [None]
